FAERS Safety Report 13718597 (Version 1)
Quarter: 2017Q3

REPORT INFORMATION
  Report Type: Spontaneous
  Country: US (occurrence: US)
  Receive Date: 20170705
  Receipt Date: 20170705
  Transmission Date: 20171127
  Serious: No
  Sender: FDA-Public Use
  Company Number: GXBR2017US001469

PATIENT
  Sex: Female
  Weight: 48.98 kg

DRUGS (2)
  1. BIMATOPROST. [Suspect]
     Active Substance: BIMATOPROST
     Indication: GROWTH OF EYELASHES
  2. BIMATOPROST. [Suspect]
     Active Substance: BIMATOPROST
     Indication: GROWTH OF EYELASHES
     Dosage: UNK DF, UNK
     Route: 065
     Dates: start: 20170315, end: 20170418

REACTIONS (1)
  - Drug ineffective [Not Recovered/Not Resolved]
